FAERS Safety Report 7962655-4 (Version None)
Quarter: 2011Q4

REPORT INFORMATION
  Report Type: 
  Country: None (occurrence: None)
  Receive Date: 20111207
  Receipt Date: 20111205
  Transmission Date: 20120403
  Serious: No
  Sender: FDA-Public Use
  Company Number: US-B.I. PHARMACEUTICALS,INC./RIDGEFIELD-2011-BP-27507BP

PATIENT
  Sex: Female
  Weight: 87.09 kg

DRUGS (9)
  1. NEURONTIN [Suspect]
     Indication: PAIN IN EXTREMITY
  2. VASOTEC [Concomitant]
     Indication: BLOOD PRESSURE ABNORMAL
  3. MOBIC [Suspect]
     Indication: ARTHRALGIA
     Dates: start: 20111101, end: 20111117
  4. MOBIC [Suspect]
     Indication: PAIN IN EXTREMITY
  5. NEURONTIN [Suspect]
     Indication: ARTHRALGIA
     Dosage: 900 MG
     Route: 048
     Dates: start: 20111101, end: 20111117
  6. NORVASC [Concomitant]
     Indication: BLOOD PRESSURE ABNORMAL
  7. PLAVIX [Concomitant]
     Indication: CEREBROVASCULAR ACCIDENT
  8. MOBIC [Suspect]
     Indication: BACK PAIN
  9. NEURONTIN [Suspect]
     Indication: BACK PAIN

REACTIONS (11)
  - SPEECH DISORDER [None]
  - WEIGHT INCREASED [None]
  - MALAISE [None]
  - JOINT SWELLING [None]
  - NAUSEA [None]
  - DIZZINESS [None]
  - GAIT DISTURBANCE [None]
  - DRUG INEFFECTIVE [None]
  - SOMNOLENCE [None]
  - FATIGUE [None]
  - DIPLOPIA [None]
